FAERS Safety Report 21897879 (Version 1)
Quarter: 2023Q1

REPORT INFORMATION
  Report Type: Spontaneous
  Country: US (occurrence: None)
  Receive Date: 20230120
  Receipt Date: 20230120
  Transmission Date: 20230418
  Serious: Yes (Hospitalization)
  Sender: FDA-Public Use
  Company Number: None

PATIENT
  Age: 6 Month
  Sex: Female

DRUGS (1)
  1. EPOGEN [Suspect]
     Active Substance: ERYTHROPOIETIN
     Indication: Nephrogenic anaemia
     Dosage: OTHER STRENGTH : 2,000 U/ML;?OTHER QUANTITY : 400 UNITS;?
     Route: 058

REACTIONS (3)
  - Surgery [None]
  - Gastrostomy [None]
  - Haemodialysis [None]

NARRATIVE: CASE EVENT DATE: 20230111
